FAERS Safety Report 13874037 (Version 1)
Quarter: 2017Q3

REPORT INFORMATION
  Report Type: Spontaneous
  Country: GB (occurrence: GB)
  Receive Date: 20170816
  Receipt Date: 20170816
  Transmission Date: 20171127
  Serious: Yes (Other)
  Sender: FDA-Public Use
  Company Number: GB-MYLANLABS-2017M1049840

PATIENT

DRUGS (10)
  1. CETIRIZINE [Concomitant]
     Active Substance: CETIRIZINE HYDROCHLORIDE
     Indication: HYPERSENSITIVITY
     Dosage: ON EXPOSURE TO ALLERGEN
     Dates: start: 20101124
  2. DIAZEPAM. [Concomitant]
     Active Substance: DIAZEPAM
     Dosage: UP TO THREE TIMES DAILY.
     Dates: start: 20170606, end: 20170611
  3. LANSOPRAZOLE. [Concomitant]
     Active Substance: LANSOPRAZOLE
     Dosage: BEFORE BREAKFAST.
     Dates: start: 20170508
  4. ATORVASTATIN [Suspect]
     Active Substance: ATORVASTATIN
     Indication: PRODUCT USED FOR UNKNOWN INDICATION
     Dates: start: 20170508
  5. AMLODIPINE [Concomitant]
     Active Substance: AMLODIPINE BESYLATE
     Dosage: EACH MORNING.
     Dates: start: 20170606
  6. HYPROMELLOSE [Concomitant]
     Active Substance: HYPROMELLOSES
     Indication: DRY EYE
     Dates: start: 20170508
  7. LISINOPRIL. [Concomitant]
     Active Substance: LISINOPRIL
     Dates: start: 20170508, end: 20170606
  8. EPIPEN [Concomitant]
     Active Substance: EPINEPHRINE
     Dosage: USE AS DIRECTED BY HOSPITAL.
     Dates: start: 20160726
  9. ESTRADIOL. [Concomitant]
     Active Substance: ESTRADIOL
     Dosage: 1 DF, UNK
     Dates: start: 20160413, end: 20170511
  10. OMEPRAZOLE. [Concomitant]
     Active Substance: OMEPRAZOLE
     Dates: start: 20110418

REACTIONS (4)
  - Muscle spasms [Recovering/Resolving]
  - Facial pain [Unknown]
  - Myalgia [Unknown]
  - Eye pain [Unknown]

NARRATIVE: CASE EVENT DATE: 20170726
